FAERS Safety Report 13651912 (Version 1)
Quarter: 2017Q2

REPORT INFORMATION
  Report Type: Spontaneous
  Country: HK (occurrence: HK)
  Receive Date: 20170614
  Receipt Date: 20170614
  Transmission Date: 20170830
  Serious: Yes (Hospitalization)
  Sender: FDA-Public Use
  Company Number: HK-NORTH CREEK PHARMACEUTICALS LLC-2017VTS00634

PATIENT
  Age: 43 Year
  Sex: Female

DRUGS (1)
  1. TRANEXAMIC ACID. [Suspect]
     Active Substance: TRANEXAMIC ACID
     Indication: MENORRHAGIA
     Dosage: 500 MG, 4X/DAY
     Route: 048

REACTIONS (1)
  - Obstructive uropathy [Recovered/Resolved]
